FAERS Safety Report 8046143-5 (Version None)
Quarter: 2012Q1

REPORT INFORMATION
  Report Type: 
  Country: None (occurrence: None)
  Receive Date: 20120113
  Receipt Date: 20120109
  Transmission Date: 20120608
  Serious: No
  Sender: FDA-Public Use
  Company Number: US-PFIZER INC-2012007743

PATIENT
  Sex: Female

DRUGS (3)
  1. CHANTIX [Suspect]
     Indication: SMOKING CESSATION THERAPY
     Dosage: 1 MG, UNK
     Route: 048
     Dates: start: 20111218
  2. LORAZEPAM [Concomitant]
     Indication: NERVOUSNESS
     Dosage: 0.5 MG, AS NEEDED
  3. COPAXONE [Concomitant]
     Indication: MULTIPLE SCLEROSIS
     Dosage: DAILY

REACTIONS (2)
  - DYSGEUSIA [None]
  - OEDEMA PERIPHERAL [None]
